FAERS Safety Report 17650991 (Version 1)
Quarter: 2020Q2

REPORT INFORMATION
  Report Type: Spontaneous
  Country: CA (occurrence: CA)
  Receive Date: 20200409
  Receipt Date: 20200409
  Transmission Date: 20200713
  Serious: Yes (Hospitalization)
  Sender: FDA-Public Use
  Company Number: CA-PFIZER INC-2020146628

PATIENT
  Sex: Female

DRUGS (1)
  1. MIDAZOLAM. [Suspect]
     Active Substance: MIDAZOLAM
     Indication: COLONOSCOPY
     Dosage: UNK
     Route: 065

REACTIONS (4)
  - Palpitations [Not Recovered/Not Resolved]
  - Nausea [Not Recovered/Not Resolved]
  - Hypotension [Not Recovered/Not Resolved]
  - Fatigue [Not Recovered/Not Resolved]
